FAERS Safety Report 18857630 (Version 2)
Quarter: 2021Q1

REPORT INFORMATION
  Report Type: Spontaneous
  Country: US (occurrence: US)
  Receive Date: 20210208
  Receipt Date: 20210303
  Transmission Date: 20210420
  Serious: No
  Sender: FDA-Public Use
  Company Number: US-CELGENEUS-USA-20210201383

PATIENT
  Sex: Female

DRUGS (1)
  1. POMALYST [Suspect]
     Active Substance: POMALIDOMIDE
     Indication: PLASMA CELL MYELOMA
     Dosage: 2 MILLIGRAM; EVERY MORNING AT THE SAME TIME. TAKE WITH WATER, ON EMPTY STOMACH 2 HR BEFORE/AFTER FOO
     Route: 048
     Dates: start: 202010

REACTIONS (1)
  - Fatigue [Unknown]
